FAERS Safety Report 25899196 (Version 2)
Quarter: 2025Q4

REPORT INFORMATION
  Report Type: Report from Study
  Country: MX (occurrence: MX)
  Receive Date: 20251009
  Receipt Date: 20251015
  Transmission Date: 20260119
  Serious: Yes (Death, Hospitalization)
  Sender: ROCHE
  Company Number: MX-ROCHE-10000404990

PATIENT
  Age: 18 Year
  Sex: Female

DRUGS (3)
  1. OCRELIZUMAB [Suspect]
     Active Substance: OCRELIZUMAB
     Indication: Multiple sclerosis
     Dosage: LOADING DOSE 1
     Route: 042
     Dates: start: 202407
  2. OCRELIZUMAB [Suspect]
     Active Substance: OCRELIZUMAB
     Dosage: LOADING DOSE 2
     Route: 042
  3. OCRELIZUMAB [Suspect]
     Active Substance: OCRELIZUMAB
     Dosage: MAINTENANCE DOSE.
     Route: 042
     Dates: end: 202502

REACTIONS (3)
  - Epilepsy [Not Recovered/Not Resolved]
  - Sepsis [Fatal]
  - Inflammation [Fatal]

NARRATIVE: CASE EVENT DATE: 20250601
